FAERS Safety Report 26115046 (Version 2)
Quarter: 2025Q4

REPORT INFORMATION
  Report Type: Spontaneous
  Country: JP (occurrence: JP)
  Receive Date: 20251203
  Receipt Date: 20251231
  Transmission Date: 20260117
  Serious: Yes (Death, Hospitalization)
  Sender: BEIGENE
  Company Number: JP-BEONEMEDICINES-BGN-2025-021471

PATIENT
  Age: 61 Year
  Sex: Male

DRUGS (12)
  1. TEVIMBRA [Suspect]
     Active Substance: TISLELIZUMAB-JSGR
     Indication: Oesophageal cancer metastatic
     Dosage: 200 MILLIGRAM, FRIST CYCLE
  2. TEVIMBRA [Suspect]
     Active Substance: TISLELIZUMAB-JSGR
     Dosage: 200 MILLIGRAM, FRIST CYCLE
  3. TEVIMBRA [Suspect]
     Active Substance: TISLELIZUMAB-JSGR
     Dosage: 200 MILLIGRAM, FRIST CYCLE
  4. TEVIMBRA [Suspect]
     Active Substance: TISLELIZUMAB-JSGR
     Dosage: 200 MILLIGRAM, FRIST CYCLE
  5. TEVIMBRA [Suspect]
     Active Substance: TISLELIZUMAB-JSGR
     Dosage: SECOND CYCLE
  6. TEVIMBRA [Suspect]
     Active Substance: TISLELIZUMAB-JSGR
     Dosage: SECOND CYCLE
  7. FLUOROURACIL [Suspect]
     Active Substance: FLUOROURACIL
     Indication: Oesophageal cancer metastatic
     Dosage: FRIST CYCLE
  8. FLUOROURACIL [Suspect]
     Active Substance: FLUOROURACIL
     Dosage: SECOND CYCLE
  9. FLUOROURACIL [Suspect]
     Active Substance: FLUOROURACIL
     Dosage: UNK
     Dates: start: 20251031, end: 20251104
  10. CISPLATIN [Suspect]
     Active Substance: CISPLATIN
     Indication: Oesophageal cancer metastatic
     Dosage: FRIST CYCLE
  11. CISPLATIN [Suspect]
     Active Substance: CISPLATIN
     Dosage: SECOND CYCLE
  12. CISPLATIN [Suspect]
     Active Substance: CISPLATIN
     Dosage: UNK

REACTIONS (5)
  - Cardiac arrest [Fatal]
  - Pulmonary tumour thrombotic microangiopathy [Fatal]
  - Loss of consciousness [Fatal]
  - Hyperglycaemia [Unknown]
  - Decreased appetite [Unknown]

NARRATIVE: CASE EVENT DATE: 20251104
